FAERS Safety Report 22606865 (Version 1)
Quarter: 2023Q2

REPORT INFORMATION
  Report Type: Spontaneous
  Country: US (occurrence: US)
  Receive Date: 20230615
  Receipt Date: 20230615
  Transmission Date: 20230721
  Serious: Yes (Other)
  Sender: FDA-Public Use
  Company Number: US-TEVA-2023-US-2896113

PATIENT
  Age: 81 Year
  Sex: Male
  Weight: 85.3 kg

DRUGS (9)
  1. LISINOPRIL [Suspect]
     Active Substance: LISINOPRIL
     Indication: Product used for unknown indication
     Route: 065
     Dates: end: 202305
  2. LISINOPRIL [Suspect]
     Active Substance: LISINOPRIL
     Dosage: CUTTING DOSE IN HALF DOSE DECREASED)
     Route: 065
     Dates: start: 202305
  3. HYDROCHLOROTHIAZIDE [Suspect]
     Active Substance: HYDROCHLOROTHIAZIDE
     Indication: Product used for unknown indication
     Route: 065
     Dates: end: 202305
  4. TYVASO [Suspect]
     Active Substance: TREPROSTINIL
     Indication: Pulmonary arterial hypertension
     Dosage: 36 MICROGRAM DAILY;
     Route: 055
     Dates: start: 202305, end: 202305
  5. TYVASO [Suspect]
     Active Substance: TREPROSTINIL
     Route: 055
     Dates: start: 202305, end: 202305
  6. TYVASO [Suspect]
     Active Substance: TREPROSTINIL
     Route: 055
     Dates: start: 202305, end: 202305
  7. TYVASO [Suspect]
     Active Substance: TREPROSTINIL
     Dosage: 72 MICROGRAM DAILY; STRENGTH; 0.6 MG/ML
     Route: 055
     Dates: start: 202305, end: 202305
  8. ADVAIR HFA [Suspect]
     Active Substance: FLUTICASONE PROPIONATE\SALMETEROL XINAFOATE
     Indication: Product used for unknown indication
     Route: 065
  9. OFEV [Concomitant]
     Active Substance: NINTEDANIB
     Indication: Product used for unknown indication

REACTIONS (7)
  - Arrhythmia [Unknown]
  - Hypertension [Unknown]
  - Idiopathic pulmonary fibrosis [Unknown]
  - Oxygen saturation decreased [Unknown]
  - Dyspnoea [Unknown]
  - Loss of personal independence in daily activities [Unknown]
  - Hypotension [Unknown]

NARRATIVE: CASE EVENT DATE: 20230501
